FAERS Safety Report 6959621-4 (Version None)
Quarter: 2010Q3

REPORT INFORMATION
  Report Type: 
  Country: None (occurrence: None)
  Receive Date: 20100827
  Receipt Date: 20100823
  Transmission Date: 20110219
  Serious: Yes (Other)
  Sender: FDA-Public Use
  Company Number: 013643

PATIENT
  Sex: Female
  Weight: 73 kg

DRUGS (4)
  1. XYZAL [Suspect]
     Indication: SEASONAL ALLERGY
     Dosage: (5 MG QD ORAL)
     Route: 048
     Dates: start: 20100605
  2. VITAMIN TAB [Concomitant]
  3. CELESTAMINE TAB [Concomitant]
  4. OPTICRON [Concomitant]

REACTIONS (2)
  - DRUG EXPOSURE DURING PREGNANCY [None]
  - THREATENED LABOUR [None]
